FAERS Safety Report 17636437 (Version 1)
Quarter: 2020Q2

REPORT INFORMATION
  Report Type: Spontaneous
  Country: US (occurrence: US)
  Receive Date: 20200407
  Receipt Date: 20200407
  Transmission Date: 20200713
  Serious: No
  Sender: FDA-Public Use
  Company Number: US-BAYER-2020-057059

PATIENT
  Sex: Male

DRUGS (1)
  1. CLARITIN [Suspect]
     Active Substance: LORATADINE
     Route: 065

REACTIONS (2)
  - Lacrimation increased [Unknown]
  - Eye pruritus [Unknown]
